FAERS Safety Report 20691561 (Version 1)
Quarter: 2022Q2

REPORT INFORMATION
  Report Type: Spontaneous
  Country: JP (occurrence: JP)
  Receive Date: 20220408
  Receipt Date: 20220408
  Transmission Date: 20220720
  Serious: Yes (Other)
  Sender: FDA-Public Use
  Company Number: JP-PFIZER INC-202200511887

PATIENT

DRUGS (1)
  1. EPLERENONE [Suspect]
     Active Substance: EPLERENONE
     Route: 048

REACTIONS (2)
  - Hyperkalaemia [Unknown]
  - Hypoaesthesia [Unknown]
